FAERS Safety Report 14250454 (Version 1)
Quarter: 2017Q4

REPORT INFORMATION
  Report Type: Spontaneous
  Country: US (occurrence: US)
  Receive Date: 20171205
  Receipt Date: 20171205
  Transmission Date: 20180321
  Serious: No
  Sender: FDA-Public Use
  Company Number: US-TEVA-769448ACC

PATIENT
  Sex: Male

DRUGS (3)
  1. ALPRAZOLAM. [Suspect]
     Active Substance: ALPRAZOLAM
     Indication: PANIC ATTACK
     Dosage: 1.5 MILLIGRAM DAILY;
  2. ALPRAZOLAM. [Suspect]
     Active Substance: ALPRAZOLAM
     Dates: start: 20170301
  3. SERTRALINE- CIPLO [Concomitant]
     Dates: start: 20170301

REACTIONS (5)
  - Insomnia [Recovering/Resolving]
  - Gait disturbance [Unknown]
  - Drug screen positive [Unknown]
  - Somnolence [Recovering/Resolving]
  - Abnormal behaviour [Recovering/Resolving]

NARRATIVE: CASE EVENT DATE: 20170308
